FAERS Safety Report 8398068-3 (Version None)
Quarter: 2012Q2

REPORT INFORMATION
  Report Type: 
  Country: None (occurrence: None)
  Receive Date: 20120524
  Receipt Date: 20120508
  Transmission Date: 20120825
  Serious: Yes (Other)
  Sender: FDA-Public Use
  Company Number: NSR_00548_2012

PATIENT
  Age: 57 Year
  Sex: Female

DRUGS (1)
  1. LEFLUNOMIDE [Suspect]
     Indication: RHEUMATOID ARTHRITIS
     Dosage: (DF)
     Dates: end: 20050501

REACTIONS (10)
  - LYMPHANGIOMA [None]
  - PLEURAL EFFUSION [None]
  - BLISTER [None]
  - SCAB [None]
  - KAPOSI'S SARCOMA [None]
  - HAEMORRHAGE [None]
  - HAEMOGLOBIN DECREASED [None]
  - ATELECTASIS [None]
  - SKIN LESION [None]
  - SKIN HYPERPIGMENTATION [None]
